FAERS Safety Report 23160039 (Version 2)
Quarter: 2024Q1

REPORT INFORMATION
  Report Type: Report from Study
  Country: US (occurrence: US)
  Receive Date: 20231108
  Receipt Date: 20240223
  Transmission Date: 20240409
  Serious: No
  Sender: FDA-Public Use
  Company Number: US-INCYTE CORPORATION-2023IN010940

PATIENT

DRUGS (1)
  1. JAKAFI [Suspect]
     Active Substance: RUXOLITINIB
     Indication: Polycythaemia vera
     Dosage: 20 MILLIGRAM, BID
     Route: 065

REACTIONS (4)
  - Pruritus [Unknown]
  - Erythema [Unknown]
  - Swelling face [Unknown]
  - Product availability issue [Unknown]

NARRATIVE: CASE EVENT DATE: 20231015
